FAERS Safety Report 12013007 (Version 3)
Quarter: 2016Q2

REPORT INFORMATION
  Report Type: Spontaneous
  Country: US (occurrence: US)
  Receive Date: 20160205
  Receipt Date: 20160523
  Transmission Date: 20160815
  Serious: Yes (Other)
  Sender: FDA-Public Use
  Company Number: US-TEVA-631304USA

PATIENT
  Sex: Female

DRUGS (3)
  1. MAXALT [Concomitant]
     Active Substance: RIZATRIPTAN BENZOATE
  2. ZECUITY [Suspect]
     Active Substance: SUMATRIPTAN SUCCINATE
     Route: 062
     Dates: start: 2015, end: 2015
  3. ZECUITY [Suspect]
     Active Substance: SUMATRIPTAN SUCCINATE
     Route: 062
     Dates: start: 2016, end: 2016

REACTIONS (14)
  - Application site scar [Recovered/Resolved with Sequelae]
  - Application site reaction [Unknown]
  - Application site paraesthesia [Unknown]
  - Application site discolouration [Not Recovered/Not Resolved]
  - Device issue [Unknown]
  - Application site warmth [Unknown]
  - Cerebrovascular accident [Unknown]
  - Application site pruritus [Unknown]
  - Miliaria [Recovered/Resolved]
  - Application site rash [Unknown]
  - Application site erythema [Unknown]
  - Application site swelling [Unknown]
  - Skin reaction [Unknown]
  - Product physical issue [Unknown]

NARRATIVE: CASE EVENT DATE: 2015
